FAERS Safety Report 25122083 (Version 2)
Quarter: 2025Q2

REPORT INFORMATION
  Report Type: Spontaneous
  Country: JP (occurrence: JP)
  Receive Date: 20250326
  Receipt Date: 20250429
  Transmission Date: 20250716
  Serious: Yes (Other)
  Sender: MERCK SHARP & DOHME LLC
  Company Number: JP-009507513-2268263

PATIENT
  Age: 52 Year

DRUGS (4)
  1. KEYTRUDA [Suspect]
     Active Substance: PEMBROLIZUMAB
     Indication: Neuroendocrine carcinoma
  2. BEVACIZUMAB [Suspect]
     Active Substance: BEVACIZUMAB
     Indication: Neuroendocrine carcinoma
  3. CARBOPLATIN [Suspect]
     Active Substance: CARBOPLATIN
     Indication: Neuroendocrine carcinoma
  4. PACLITAXEL [Suspect]
     Active Substance: PACLITAXEL
     Indication: Neuroendocrine carcinoma

REACTIONS (6)
  - Malignant neoplasm progression [Unknown]
  - Therapy partial responder [Unknown]
  - Neutrophil count decreased [Unknown]
  - White blood cell count decreased [Unknown]
  - Immune-mediated hypothyroidism [Unknown]
  - Recurrent cancer [Unknown]
